FAERS Safety Report 5891638-3 (Version None)
Quarter: 2008Q3

REPORT INFORMATION
  Report Type: 
  Country: None (occurrence: None)
  Receive Date: 20080922
  Receipt Date: 20080910
  Transmission Date: 20090109
  Serious: Yes (Hospitalization)
  Sender: FDA-Public Use
  Company Number: US-PFIZER INC-2008029787

PATIENT
  Sex: Female
  Weight: 72.1 kg

DRUGS (7)
  1. SU-011,248 [Suspect]
     Indication: METASTATIC RENAL CELL CARCINOMA
     Route: 048
     Dates: start: 20070614
  2. PROMETHAZINE [Concomitant]
     Route: 048
     Dates: start: 20070101
  3. CALCIUM GLUCONATE [Concomitant]
     Route: 048
     Dates: start: 20070501
  4. VITAMIN B-12 [Concomitant]
     Route: 048
     Dates: start: 20060101
  5. LOVASTATIN [Concomitant]
     Route: 048
     Dates: start: 20040101
  6. METOPROLOL TARTRATE [Concomitant]
     Route: 048
     Dates: start: 19940101
  7. VALSARTAN [Concomitant]
     Route: 048
     Dates: start: 19940101

REACTIONS (4)
  - DEHYDRATION [None]
  - NAUSEA [None]
  - RENAL FAILURE ACUTE [None]
  - VOMITING [None]
